FAERS Safety Report 13994124 (Version 1)
Quarter: 2017Q3

REPORT INFORMATION
  Report Type: Spontaneous
  Country: US (occurrence: US)
  Receive Date: 20170920
  Receipt Date: 20170920
  Transmission Date: 20171128
  Serious: No
  Sender: FDA-Public Use
  Company Number: US-NEUROCRINE BIOSCIENCES INC.-2017NBI00481

PATIENT
  Sex: Male
  Weight: 66.74 kg

DRUGS (7)
  1. VITAMIN D [Concomitant]
     Active Substance: CHOLECALCIFEROL
  2. MULTIVITAMIN [Concomitant]
     Active Substance: VITAMINS
  3. IRON [Concomitant]
     Active Substance: IRON
  4. SIMVASTATIN. [Concomitant]
     Active Substance: SIMVASTATIN
  5. INGREZZA [Suspect]
     Active Substance: VALBENAZINE
     Indication: BALANCE DISORDER
     Route: 048
     Dates: start: 2017
  6. INGREZZA [Suspect]
     Active Substance: VALBENAZINE
     Indication: ANXIETY
  7. CRESTOR [Concomitant]
     Active Substance: ROSUVASTATIN CALCIUM

REACTIONS (2)
  - Decreased appetite [Not Recovered/Not Resolved]
  - Weight decreased [Not Recovered/Not Resolved]

NARRATIVE: CASE EVENT DATE: 2017
